FAERS Safety Report 6194642-3 (Version None)
Quarter: 2009Q2

REPORT INFORMATION
  Report Type: 
  Country: None (occurrence: None)
  Receive Date: 20090519
  Receipt Date: 20090507
  Transmission Date: 20091009
  Serious: Yes (Life-Threatening, Hospitalization, Other)
  Sender: FDA-Public Use
  Company Number: JP-PFIZER INC-2009200381

PATIENT
  Age: 48 Year

DRUGS (2)
  1. VIBRAMYCIN [Suspect]
     Dosage: UNK
     Dates: start: 20090406, end: 20090409
  2. MINOCYCLINE HCL [Concomitant]
     Dosage: UNK
     Route: 048
     Dates: start: 20090323, end: 20090329

REACTIONS (2)
  - LUNG DISORDER [None]
  - RENAL DISORDER [None]
